FAERS Safety Report 10074101 (Version 2)
Quarter: 2014Q2

REPORT INFORMATION
  Report Type: Report from Study
  Country: US (occurrence: US)
  Receive Date: 20140412
  Receipt Date: 20140613
  Transmission Date: 20141212
  Serious: No
  Sender: FDA-Public Use
  Company Number: US-009507513-1404JPN001545

PATIENT
  Sex: 0

DRUGS (6)
  1. FAMOTIDINE [Suspect]
     Indication: CLEAR CELL RENAL CELL CARCINOMA
     Dosage: 20 MG, IV DAILY FOR 3 DAYS FOR 6 CONSECUTIVE WEEKS
     Route: 042
  2. RECOMBINANT HUMAN INTERLEUKIN-2 (125ALA) [Suspect]
     Indication: CLEAR CELL RENAL CELL CARCINOMA
     Dosage: 18000000 IU/M2 INTRAVENOUSLY OVER 15-30 MINUTES FOR 3 DAYS FOR 6 CONSECUTIVE WEEKS
     Route: 042
  3. ONDANSETRON HYDROCHLORIDE [Concomitant]
     Dosage: 16 MG, QD
     Route: 042
  4. MEPERIDINE HYDROCHLORIDE [Concomitant]
     Dosage: 25 MG, QD
     Route: 042
  5. ACETAMINOPHEN [Concomitant]
     Dosage: 650 MG, QD
     Route: 048
  6. IBUPROFEN [Concomitant]
     Dosage: 400 MG, QD
     Route: 048

REACTIONS (1)
  - Hypotension [Unknown]
